FAERS Safety Report 13652585 (Version 1)
Quarter: 2017Q2

REPORT INFORMATION
  Report Type: Spontaneous
  Country: AT (occurrence: AT)
  Receive Date: 20170614
  Receipt Date: 20170614
  Transmission Date: 20170830
  Serious: Yes (Other)
  Sender: FDA-Public Use
  Company Number: AT-SA-2017SA083635

PATIENT
  Sex: Male

DRUGS (6)
  1. PRALUENT [Suspect]
     Active Substance: ALIROCUMAB
     Route: 058
     Dates: end: 201705
  2. ALIROCUMAB PREFILLED PEN [Concomitant]
     Active Substance: ALIROCUMAB
     Dates: end: 201705
  3. PRALUENT [Suspect]
     Active Substance: ALIROCUMAB
     Route: 058
  4. EZETROL [Concomitant]
     Active Substance: EZETIMIBE
  5. ATORVASTATIN [Concomitant]
     Active Substance: ATORVASTATIN
  6. ALIROCUMAB PREFILLED PEN [Concomitant]
     Active Substance: ALIROCUMAB

REACTIONS (4)
  - Cerebrovascular accident [Unknown]
  - Muscle spasms [Unknown]
  - Visual impairment [Unknown]
  - Blood creatine phosphokinase increased [Unknown]
